FAERS Safety Report 13920030 (Version 3)
Quarter: 2017Q3

REPORT INFORMATION
  Report Type: Spontaneous
  Country: US (occurrence: US)
  Receive Date: 20170830
  Receipt Date: 20170913
  Transmission Date: 20171127
  Serious: No
  Sender: FDA-Public Use
  Company Number: US-PFIZER INC-2017370879

PATIENT
  Age: 6 Decade
  Sex: Female
  Weight: 86 kg

DRUGS (4)
  1. METHOTREXATE SODIUM. [Suspect]
     Active Substance: METHOTREXATE SODIUM
     Indication: RHEUMATOID ARTHRITIS
     Dosage: UNK
  2. PREDNISONE. [Concomitant]
     Active Substance: PREDNISONE
     Indication: RHEUMATOID ARTHRITIS
     Dosage: 15 MG, 1X/DAY, (10MG ONE TABLET AND A HALF ONCE A DAY FOR A WEEK)
     Route: 048
     Dates: start: 201707, end: 2017
  3. ENBREL [Concomitant]
     Active Substance: ETANERCEPT
     Indication: RHEUMATOID ARTHRITIS
     Dosage: 1 DF, WEEKLY, ^AUTO INJECTION INTO LEG ONCE EVERY SUNDAY^
     Dates: start: 2016
  4. ENBREL [Concomitant]
     Active Substance: ETANERCEPT
     Dosage: 1 DF, UNK, ^TWICE A MONTH^
     Dates: end: 201707

REACTIONS (3)
  - Lactose intolerance [Unknown]
  - Gastrointestinal disorder [Unknown]
  - Drug ineffective [Unknown]
